FAERS Safety Report 25492619 (Version 1)
Quarter: 2025Q2

REPORT INFORMATION
  Report Type: Spontaneous
  Country: US (occurrence: US)
  Receive Date: 20250630
  Receipt Date: 20250630
  Transmission Date: 20250716
  Serious: Yes (Other)
  Sender: CSL BEHRING
  Company Number: US-BEH-2025210235

PATIENT
  Age: 45 Year
  Sex: Female

DRUGS (2)
  1. HUMATE-P [Suspect]
     Active Substance: HUMAN COAGULATION FACTOR VIII/VON WILLEBRAND FACTOR COMPLEX
     Indication: Von Willebrand^s disease
     Route: 042
     Dates: start: 202302
  2. SODIUM CHLORIDE [Concomitant]
     Active Substance: SODIUM CHLORIDE

REACTIONS (3)
  - Rectal haemorrhage [Unknown]
  - Mouth haemorrhage [Unknown]
  - Epistaxis [Unknown]

NARRATIVE: CASE EVENT DATE: 20250617
